FAERS Safety Report 9261271 (Version 1)
Quarter: 2013Q2

REPORT INFORMATION
  Report Type: Spontaneous
  Country: US (occurrence: US)
  Receive Date: 20130429
  Receipt Date: 20130429
  Transmission Date: 20140414
  Serious: No
  Sender: FDA-Public Use
  Company Number: US-AMGEN-USASP2013013051

PATIENT
  Age: 60 Year
  Sex: Female

DRUGS (3)
  1. SENSIPAR [Suspect]
     Indication: HYPERPARATHYROIDISM SECONDARY
     Dosage: 30 MG, QD
     Dates: start: 201211
  2. ACYCLOVIR                          /00587301/ [Concomitant]
  3. CYCLOBENZAPRINE [Concomitant]

REACTIONS (2)
  - Fatigue [Unknown]
  - Onychoclasis [Unknown]
